FAERS Safety Report 13055813 (Version 1)
Quarter: 2016Q4

REPORT INFORMATION
  Report Type: Report from Study
  Country: None (occurrence: US)
  Receive Date: 20161222
  Receipt Date: 20161222
  Transmission Date: 20170207
  Serious: Yes (Hospitalization, Other)
  Sender: FDA-Public Use
  Company Number: US-ABBVIE-16K-163-1734283-00

PATIENT
  Age: 69 Year
  Sex: Male
  Weight: 77.1 kg

DRUGS (3)
  1. HUMIRA [Suspect]
     Active Substance: ADALIMUMAB
     Indication: CROHN^S DISEASE
     Route: 058
  2. PREDNISONE. [Concomitant]
     Active Substance: PREDNISONE
     Indication: PRODUCT USED FOR UNKNOWN INDICATION
     Dosage: 40 MG FOR 1 WEEK AND DECREASE DOSE BY 5MG EVERY WEEK
     Route: 048
  3. PREDNISONE. [Concomitant]
     Active Substance: PREDNISONE
     Dosage: 40 MG DAILY FOR 1 WEEK AND DECREASE DOSE BY 5MG EVERY WEEK
     Route: 048

REACTIONS (18)
  - Gastrooesophageal reflux disease [Unknown]
  - Blood urea increased [Unknown]
  - Small intestinal obstruction [Recovering/Resolving]
  - Abdominal hernia [Unknown]
  - Blood creatinine increased [Unknown]
  - Hiatus hernia [Unknown]
  - Red blood cells urine positive [Unknown]
  - Small intestinal resection [Unknown]
  - Monocyte count increased [Unknown]
  - White blood cell count increased [Unknown]
  - Gastrooesophageal reflux disease [Recovering/Resolving]
  - Abdominal operation [Unknown]
  - Neutrophil count increased [Unknown]
  - Lymphocyte count decreased [Unknown]
  - Crohn^s disease [Unknown]
  - Hypertension [Recovering/Resolving]
  - Cholecystectomy [Unknown]
  - Aspartate aminotransferase decreased [Unknown]

NARRATIVE: CASE EVENT DATE: 2003
